FAERS Safety Report 4382524-9 (Version None)
Quarter: 2004Q2

REPORT INFORMATION
  Report Type: 
  Country: None (occurrence: None)
  Receive Date: 20040609
  Receipt Date: 20040526
  Transmission Date: 20050107
  Serious: Yes (Life-Threatening, Hospitalization)
  Sender: FDA-Public Use
  Company Number: ZLBIGIV/04/19/USA

PATIENT
  Age: 25 Year
  Sex: Female

DRUGS (1)
  1. CARIMUNE [Suspect]
     Indication: CHRONIC INFLAMMATORY DEMYELINATING POLYRADICULONEUROPATHY
     Dosage: 6 G, O.A.D., I.V.
     Route: 042
     Dates: start: 20040512, end: 20040515

REACTIONS (5)
  - DIARRHOEA [None]
  - HAEMATOCHEZIA [None]
  - NAUSEA [None]
  - PYREXIA [None]
  - VOMITING [None]
